FAERS Safety Report 5806790-5 (Version None)
Quarter: 2008Q3

REPORT INFORMATION
  Report Type: 
  Country: None (occurrence: None)
  Receive Date: 20080708
  Receipt Date: 20080623
  Transmission Date: 20090109
  Serious: Yes (Hospitalization)
  Sender: FDA-Public Use
  Company Number: DSA_31940_2008

PATIENT
  Sex: Female

DRUGS (4)
  1. LORAZEPAM [Suspect]
     Dosage: NOT THE PRESCRIBED AMOUNT ORAL)
     Route: 048
     Dates: start: 20080527, end: 20080527
  2. DIAZEPAM [Suspect]
     Dosage: NOT THE PRESCRIBED AMOUNT ORAL
     Route: 048
     Dates: start: 20080527, end: 20080527
  3. OXAZEPAM [Suspect]
     Dosage: NOT THE PRESCRIBED AMOUNT ORAL
     Route: 048
     Dates: start: 20080527, end: 20080527
  4. HERBICIDE FOR SYSTEMIC APPLICATION (GLYPHOSATE) [Suspect]
     Dosage: ORAL
     Route: 048
     Dates: start: 20080527, end: 20080527

REACTIONS (6)
  - ACIDOSIS [None]
  - BURN OESOPHAGEAL [None]
  - COMA [None]
  - HYPOKALAEMIA [None]
  - INTENTIONAL OVERDOSE [None]
  - SUICIDE ATTEMPT [None]
